FAERS Safety Report 8418599 (Version 3)
Quarter: 2012Q4

REPORT INFORMATION
  Report Type: 
  Country: IT (occurrence: IT)
  Receive Date: 20120221
  Receipt Date: 20121019
  Transmission Date: 20130627
  Serious: Yes (Other)
  Sender: FDA-Public Use
  Company Number: IT-ARROW GEN-2012-02632

PATIENT
  Age: 47 Year
  Sex: Female

DRUGS (3)
  1. QUETIAPINE [Suspect]
     Indication: PSYCHOTIC DISORDER
     Dosage: 400 mg, daily
     Route: 065
     Dates: start: 201010
  2. QUETIAPINE [Suspect]
     Dosage: 800 mg, daily
     Route: 065
     Dates: start: 201009, end: 201010
  3. SERTRALINE HYDROCHLORIDE (UNKNOWN) [Suspect]
     Indication: OBSESSIVE-COMPULSIVE DISORDER
     Dosage: 200 mg, daily
     Route: 065
     Dates: start: 201010, end: 201010

REACTIONS (1)
  - Pleurothotonus [Recovering/Resolving]
